FAERS Safety Report 9411231 (Version 2)
Quarter: 2013Q3

REPORT INFORMATION
  Report Type: Spontaneous
  Country: US (occurrence: US)
  Receive Date: 20130722
  Receipt Date: 20130929
  Transmission Date: 20140515
  Serious: No
  Sender: FDA-Public Use
  Company Number: US-009507513-1307USA010596

PATIENT
  Sex: Female

DRUGS (4)
  1. PEGINTRON [Suspect]
     Indication: HEPATITIS C
     Dosage: REDIPEN
     Dates: start: 20130415
  2. REBETOL [Suspect]
     Indication: HEPATITIS C
     Dosage: 3 IN THE MORNING, 3 IN NIGHT
     Route: 048
     Dates: start: 20130415
  3. REBETOL [Suspect]
     Dosage: 3 IN THE MORNING AND 2 IN NIGHT
     Route: 048
  4. VICTRELIS [Suspect]
     Indication: HEPATITIS C
     Dosage: UNKNOWN
     Route: 048
     Dates: start: 20130514

REACTIONS (6)
  - Constipation [Not Recovered/Not Resolved]
  - Fatigue [Unknown]
  - Nausea [Unknown]
  - Influenza like illness [Unknown]
  - Insomnia [Unknown]
  - Diarrhoea [Recovered/Resolved]
